FAERS Safety Report 12220643 (Version 3)
Quarter: 2016Q2

REPORT INFORMATION
  Report Type: Report from Study
  Country: US (occurrence: US)
  Receive Date: 20160330
  Receipt Date: 20160408
  Transmission Date: 20160815
  Serious: Yes (Hospitalization)
  Sender: FDA-Public Use
  Company Number: PHHO2016US004242

PATIENT
  Age: 64 Year
  Sex: Female

DRUGS (8)
  1. DECADRON [Concomitant]
     Active Substance: DEXAMETHASONE
     Indication: PRODUCT USED FOR UNKNOWN INDICATION
     Dosage: 2 MG, BID
     Route: 048
  2. AFINITOR [Suspect]
     Active Substance: EVEROLIMUS
     Indication: BREAST CANCER METASTATIC
     Route: 048
     Dates: start: 20160225, end: 20160310
  3. SYNTHROID [Concomitant]
     Active Substance: LEVOTHYROXINE SODIUM
     Indication: PRODUCT USED FOR UNKNOWN INDICATION
     Dosage: 25 UG, QD (EVERY MORNING)
     Route: 048
  4. LAPATINIB [Suspect]
     Active Substance: LAPATINIB
     Indication: BREAST CANCER METASTATIC
     Route: 048
     Dates: start: 20160225, end: 20160310
  5. LEVOTHROID [Concomitant]
     Active Substance: LEVOTHYROXINE SODIUM
     Indication: PRODUCT USED FOR UNKNOWN INDICATION
     Dosage: 25 UG, QD (EVERY MORNING)
     Route: 048
  6. CAPECITABINE. [Suspect]
     Active Substance: CAPECITABINE
     Indication: BREAST CANCER METASTATIC
     Route: 048
     Dates: start: 20160225, end: 20160310
  7. MYCOSTATIN [Concomitant]
     Active Substance: NYSTATIN
     Indication: CANDIDA INFECTION
     Dosage: 500000 U, QID
     Route: 048
  8. HEPARIN [Concomitant]
     Active Substance: HEPARIN SODIUM
     Indication: THROMBOSIS PROPHYLAXIS
     Route: 065

REACTIONS (3)
  - Lethargy [Recovered/Resolved with Sequelae]
  - Mucosal inflammation [Recovered/Resolved with Sequelae]
  - Asthenia [Recovered/Resolved with Sequelae]

NARRATIVE: CASE EVENT DATE: 20160311
